FAERS Safety Report 6889008-4 (Version None)
Quarter: 2010Q3

REPORT INFORMATION
  Report Type: 
  Country: None (occurrence: None)
  Receive Date: 20100730
  Receipt Date: 20071203
  Transmission Date: 20110219
  Serious: No
  Sender: FDA-Public Use
  Company Number: US-PFIZER INC-2007102022

PATIENT
  Sex: Male
  Weight: 76.363 kg

DRUGS (2)
  1. LIPITOR [Suspect]
     Indication: BLOOD CHOLESTEROL INCREASED
     Dates: start: 20071001
  2. LOTREL [Concomitant]
     Indication: HYPERTENSION

REACTIONS (2)
  - MUSCLE SPASMS [None]
  - RASH [None]
